FAERS Safety Report 4571440-5 (Version None)
Quarter: 2005Q1

REPORT INFORMATION
  Report Type: 
  Country: None (occurrence: None)
  Receive Date: 20050203
  Receipt Date: 20050203
  Transmission Date: 20050727
  Serious: Yes (Other)
  Sender: FDA-Public Use
  Company Number: None

PATIENT
  Sex: Male
  Weight: 146.0582 kg

DRUGS (1)
  1. METFORMIN -GENERIC [Suspect]
     Indication: DIABETES MELLITUS NON-INSULIN-DEPENDENT
     Dosage: 1000 MG BID
     Dates: start: 20020312, end: 20020324

REACTIONS (5)
  - BLOOD GLUCOSE INCREASED [None]
  - DRUG TOLERANCE DECREASED [None]
  - HOT FLUSH [None]
  - PHARMACEUTICAL PRODUCT COMPLAINT [None]
  - STOMACH DISCOMFORT [None]
